FAERS Safety Report 9778607 (Version 1)
Quarter: 2013Q4

REPORT INFORMATION
  Report Type: Spontaneous
  Country: US (occurrence: None)
  Receive Date: 20131220
  Receipt Date: 20131220
  Transmission Date: 20140711
  Serious: Yes (Hospitalization)
  Sender: FDA-Public Use
  Company Number: None

PATIENT
  Age: 54 Year
  Sex: Male
  Weight: 113.4 kg

DRUGS (5)
  1. PROVENGE [Suspect]
     Indication: PROSTATE CANCER METASTATIC
     Route: 042
     Dates: start: 20130725, end: 20130822
  2. HYDROCODONE [Concomitant]
  3. SILODOSIN [Concomitant]
  4. CALCIUM CARBONATE [Concomitant]
  5. ZOLEDRONIC ACID IN SODIUM CHLORIDE [Concomitant]

REACTIONS (1)
  - Transurethral prostatectomy [None]
